FAERS Safety Report 8163190 (Version 2)
Quarter: 2012Q4

REPORT INFORMATION
  Report Type: 
  Country: US (occurrence: US)
  Receive Date: 20110930
  Receipt Date: 20120928
  Transmission Date: 20130627
  Serious: Yes (Life-Threatening, Hospitalization)
  Sender: FDA-Public Use
  Company Number: US-VIIV HEALTHCARE LIMITED-A0936495A

PATIENT
  Age: 41 Year
  Sex: Male
  Weight: 74.1 kg

DRUGS (5)
  1. EPZICOM [Suspect]
     Indication: HIV INFECTION
     Dosage: 1U Per day
     Route: 048
     Dates: start: 2011, end: 20110607
  2. BACTRIM [Suspect]
     Indication: ANTIFUNGAL PROPHYLAXIS
     Dosage: 1U Per day
     Route: 048
     Dates: start: 2011, end: 20110607
  3. NORVIR [Concomitant]
     Indication: HIV INFECTION
     Dosage: 100MG Twice per day
     Route: 048
     Dates: start: 2011
  4. PREZISTA [Concomitant]
     Indication: HIV INFECTION
     Dosage: 400MG Twice per day
     Route: 048
     Dates: start: 2011
  5. VALTREX [Concomitant]
     Indication: PRODUCT USED FOR UNKNOWN INDICATION
     Dosage: 500MG Twice per day
     Route: 048

REACTIONS (7)
  - Hypersensitivity [Unknown]
  - Pyrexia [Recovered/Resolved]
  - Rash [Recovered/Resolved]
  - Nausea [Recovered/Resolved]
  - Vomiting [Recovered/Resolved]
  - Urticaria [Recovered/Resolved]
  - Diarrhoea [Recovered/Resolved]
